FAERS Safety Report 14853864 (Version 2)
Quarter: 2018Q2

REPORT INFORMATION
  Report Type: Spontaneous
  Country: RU (occurrence: RU)
  Receive Date: 20180507
  Receipt Date: 20180518
  Transmission Date: 20180711
  Serious: No
  Sender: FDA-Public Use
  Company Number: RU-009507513-1805RUS001888

PATIENT
  Age: 52 Year
  Sex: Female

DRUGS (3)
  1. DIPROSPAN [Suspect]
     Active Substance: BETAMETHASONE DIPROPIONATE\BETAMETHASONE SODIUM PHOSPHATE
     Indication: PAIN
  2. DIPROSPAN [Suspect]
     Active Substance: BETAMETHASONE DIPROPIONATE\BETAMETHASONE SODIUM PHOSPHATE
     Indication: BACK PAIN
     Dosage: 1.0 ML, PARAVERTEBRAL
     Route: 050
     Dates: start: 20180322, end: 20180322
  3. NISE (NIMESULIDE) [Concomitant]

REACTIONS (4)
  - Herpes zoster [Unknown]
  - Dyspnoea [Recovered/Resolved]
  - Gastric disorder [Unknown]
  - Drug hypersensitivity [Recovered/Resolved]

NARRATIVE: CASE EVENT DATE: 20180322
